FAERS Safety Report 10055051 (Version 1)
Quarter: 2014Q2

REPORT INFORMATION
  Report Type: Spontaneous
  Country: US (occurrence: US)
  Receive Date: 20140402
  Receipt Date: 20140402
  Transmission Date: 20141212
  Serious: No
  Sender: FDA-Public Use
  Company Number: US-SA-2013SA134847

PATIENT
  Age: 48 Year
  Sex: Female

DRUGS (10)
  1. AUBAGIO [Suspect]
     Indication: MULTIPLE SCLEROSIS
     Route: 065
     Dates: start: 20130708
  2. MIGRANOL ^CONAL^ [Concomitant]
     Dosage: ROUTE: OT
  3. CYMBALTA [Concomitant]
     Route: 048
  4. LEXAPRO [Concomitant]
     Route: 048
  5. MECLIZINE HYDROCHLORIDE [Concomitant]
     Route: 048
  6. ZOFRAN [Concomitant]
     Route: 048
  7. METOCLOPRAMIDE [Concomitant]
     Dosage: DOSE: 5-10 MG
     Route: 048
  8. TRAZODONE HYDROCHLORIDE [Concomitant]
     Dosage: DOSE: 100-200 MG
     Route: 048
  9. OXCARBAZEPINE [Concomitant]
     Route: 048
  10. CLONAZEPAM [Concomitant]
     Route: 048

REACTIONS (1)
  - Alopecia [Not Recovered/Not Resolved]
